FAERS Safety Report 6865765-8 (Version None)
Quarter: 2010Q3

REPORT INFORMATION
  Report Type: 
  Country: None (occurrence: None)
  Receive Date: 20100721
  Receipt Date: 20080512
  Transmission Date: 20110219
  Serious: No
  Sender: FDA-Public Use
  Company Number: US-PFIZER INC-2008037742

PATIENT
  Sex: Male
  Weight: 73.94 kg

DRUGS (2)
  1. CHANTIX [Suspect]
     Indication: SMOKING CESSATION THERAPY
     Dates: start: 20080423, end: 20080501
  2. SEROQUEL [Concomitant]
     Indication: SLEEP DISORDER

REACTIONS (6)
  - AGGRESSION [None]
  - DIZZINESS [None]
  - DRUG DOSE OMISSION [None]
  - FLATULENCE [None]
  - PAIN [None]
  - PERSONALITY CHANGE [None]
